FAERS Safety Report 9260869 (Version 2)
Quarter: 2013Q2

REPORT INFORMATION
  Report Type: Spontaneous
  Country: VE (occurrence: VE)
  Receive Date: 20130429
  Receipt Date: 20130502
  Transmission Date: 20140414
  Serious: Yes (Other)
  Sender: FDA-Public Use
  Company Number: VE-PFIZER INC-2013131126

PATIENT
  Age: 75 Year
  Sex: Male

DRUGS (1)
  1. ZOLOFT [Suspect]
     Indication: NERVOUSNESS
     Dosage: UNK, 1X/DAY
     Route: 048

REACTIONS (5)
  - Blood glucose increased [Not Recovered/Not Resolved]
  - Cardiac disorder [Not Recovered/Not Resolved]
  - Pain [Not Recovered/Not Resolved]
  - Confusional state [Not Recovered/Not Resolved]
  - Dizziness [Not Recovered/Not Resolved]
